FAERS Safety Report 9530767 (Version 2)
Quarter: 2013Q3

REPORT INFORMATION
  Report Type: Report from Study
  Country: CA (occurrence: CA)
  Receive Date: 20130918
  Receipt Date: 20130918
  Transmission Date: 20140515
  Serious: Yes (Hospitalization)
  Sender: FDA-Public Use
  Company Number: CA-ROCHE-653686

PATIENT
  Age: 43 Year
  Sex: Female
  Weight: 62.6 kg

DRUGS (12)
  1. TRASTUZUMAB [Suspect]
     Indication: BREAST CANCER
     Dosage: DOSE LEVEL; 8 MG/KG, FORM: VIALS, LAST DOSE PRIOR TO SAE: 19 AUG 2009
     Route: 042
  2. BEVACIZUMAB [Suspect]
     Indication: BREAST CANCER
     Dosage: DOSE LEVEL: 15 MG/KG, FORM: VIALS, LAST DOSE PRIOR TO SAE: 19 AUG 2009
     Route: 042
  3. CARBOPLATIN [Suspect]
     Indication: BREAST CANCER
     Dosage: DOSE LEVEL: 6 AUC, LAST DOSE PRIOR TO SAE: 19 AUG 2009, FORM: VIALS
     Route: 042
  4. CARBOPLATIN [Suspect]
     Dosage: DOSES DECREASE TO DOSE LEVELS
     Route: 042
  5. DOCETAXEL [Suspect]
     Indication: BREAST CANCER
     Dosage: DOSE LEVEL: 75 MG/M2, LAST DOSE PRIOR TO SAE: 19 AUG 2009, FORM: VIALS
     Route: 042
     Dates: start: 20090819
  6. DOCETAXEL [Suspect]
     Dosage: DOSES DECREASED TO 2 DOSE LEVELS
     Route: 042
     Dates: start: 20090911
  7. NORVASC [Concomitant]
     Route: 065
  8. ANCEF (CANADA) [Concomitant]
     Indication: PROPHYLAXIS
  9. TOBRAMYCIN [Concomitant]
     Indication: PROPHYLAXIS
  10. TYLENOL [Concomitant]
     Indication: PROPHYLAXIS
  11. FLAGYL [Concomitant]
     Indication: PROPHYLAXIS
  12. CODEINE [Concomitant]
     Indication: PROPHYLAXIS

REACTIONS (2)
  - Liver function test abnormal [Recovered/Resolved]
  - Neutropenia [Recovered/Resolved]
